FAERS Safety Report 6153762-X (Version None)
Quarter: 2009Q2

REPORT INFORMATION
  Report Type: 
  Country: None (occurrence: None)
  Receive Date: 20090410
  Receipt Date: 20090326
  Transmission Date: 20091009
  Serious: Yes (Hospitalization)
  Sender: FDA-Public Use
  Company Number: 8034915

PATIENT
  Age: 20 Year
  Sex: Female

DRUGS (5)
  1. KEPPRA [Suspect]
     Indication: EPILEPSY
     Dosage: 2000 MG /D PO
     Route: 048
     Dates: start: 20071031, end: 20071101
  2. KEPPRA [Suspect]
     Indication: EPILEPSY
     Dosage: 3000 MG /D PO
     Route: 048
     Dates: start: 20071101, end: 20080306
  3. KEPPRA [Suspect]
     Indication: EPILEPSY
     Dosage: 4000 MG /D PO
     Route: 048
     Dates: start: 20080306
  4. LAMICTAL [Concomitant]
  5. VITAMIN TAB [Suspect]

REACTIONS (4)
  - COMPLEX PARTIAL SEIZURES [None]
  - CONDITION AGGRAVATED [None]
  - DRUG EXPOSURE DURING PREGNANCY [None]
  - GRAND MAL CONVULSION [None]
